FAERS Safety Report 7315163-8 (Version None)
Quarter: 2011Q1

REPORT INFORMATION
  Report Type: 
  Country: None (occurrence: None)
  Receive Date: 20110225
  Receipt Date: 20110221
  Transmission Date: 20110831
  Serious: Yes (Hospitalization)
  Sender: FDA-Public Use
  Company Number: US-ROCHE-699572

PATIENT
  Sex: Male
  Weight: 74.3 kg

DRUGS (30)
  1. METHOTREXATE [Concomitant]
     Dosage: AS MUCH NEEDED.
     Route: 048
     Dates: start: 20050727
  2. PREDNISONE [Concomitant]
     Route: 048
     Dates: start: 20001102, end: 20100223
  3. PREDNISONE [Concomitant]
     Route: 048
     Dates: start: 20100320, end: 20100322
  4. PLAVIX [Concomitant]
     Dates: start: 20031022
  5. HYDROCHLOROTHIAZIDE [Concomitant]
     Dates: start: 20031216
  6. TOPROL-XL [Concomitant]
     Dates: start: 20031022
  7. ASPIRIN [Concomitant]
     Dates: start: 20060819, end: 20100309
  8. SIMVASTATIN [Concomitant]
     Dates: start: 20080129
  9. METHOTREXATE [Concomitant]
     Route: 048
     Dates: start: 20080109, end: 20100223
  10. PREDNISONE [Concomitant]
     Route: 048
     Dates: start: 20100314, end: 20100316
  11. LEVOXYL [Concomitant]
     Dates: start: 20051123
  12. METFORMIN HCL [Concomitant]
     Dosage: DRUG NAME REPORTED AS METFORMIN HC.
     Dates: start: 20070423
  13. ALBUTEROL [Concomitant]
     Dates: start: 20030920
  14. TOCILIZUMAB [Suspect]
     Dosage: ENROLLED IN STUDY WA18062 IN PAST, FORM: INFUSION
     Route: 042
  15. OMEPRAZOLE [Concomitant]
     Dates: start: 20060616
  16. PREDNISONE [Concomitant]
     Route: 048
     Dates: start: 20100224, end: 20100308
  17. PREDNISONE [Concomitant]
     Route: 048
     Dates: start: 20100323, end: 20100325
  18. PREDNISONE [Concomitant]
     Dosage: FREQUENCY: DAILY
     Route: 048
     Dates: start: 20100326
  19. LOVASTATIN [Concomitant]
     Dates: start: 20060210
  20. K-DUR [Concomitant]
     Dates: start: 20090528
  21. TOCILIZUMAB [Suspect]
     Indication: RHEUMATOID ARTHRITIS
     Dosage: FORM: INFUSION, DATE OF LAST DOSE PRIOR TO SAE: 04 FEBRUARY 2010.
     Route: 042
     Dates: start: 20050921, end: 20100205
  22. ISOSORBIDE MONONITRATE [Concomitant]
     Dates: start: 20031119
  23. ASPIRIN [Concomitant]
     Dates: start: 20100408
  24. GLIPIZIDE [Concomitant]
     Dates: start: 20070114, end: 20100331
  25. SWINE FLU VACCINE [Concomitant]
     Dosage: DRUG REPORTED AS: H1N1 INFLUENZA VACCINE
     Dates: start: 20100121, end: 20100121
  26. PREDNISONE [Concomitant]
     Route: 048
     Dates: start: 20100317, end: 20100319
  27. FOSAMAX [Concomitant]
     Dosage: TOTAL DAILY DOSE: 70 MG PER WEEK
     Dates: start: 20030731, end: 20100223
  28. TOCILIZUMAB [Suspect]
     Route: 042
     Dates: start: 20100601
  29. FOLIC ACID [Concomitant]
     Dates: start: 20050726
  30. CALCIUM/VITAMIN D [Concomitant]
     Dosage: 600MG/200 IU
     Dates: start: 20040422

REACTIONS (3)
  - ILEUS PARALYTIC [None]
  - PANCREATIC NEOPLASM [None]
  - PROTEUS INFECTION [None]
